FAERS Safety Report 9690910 (Version 2)
Quarter: 2014Q1

REPORT INFORMATION
  Report Type: Spontaneous
  Country: FR (occurrence: FR)
  Receive Date: 20131115
  Receipt Date: 20140305
  Transmission Date: 20141002
  Serious: Yes (Other)
  Sender: FDA-Public Use
  Company Number: FR-UCBSA-103037

PATIENT
  Age: 77 Year
  Sex: Female

DRUGS (12)
  1. NEUPRO [Suspect]
     Dosage: UNKNOWN DOSE
     Route: 048
  2. STALEVO [Suspect]
     Dosage: UNKNOWN DOSE
     Route: 048
  3. DOMPERIDONE [Suspect]
     Dosage: UNKNOWN DOSE
     Route: 048
  4. MODOPAR [Suspect]
     Dosage: UNKNOWN DOSE
     Route: 048
  5. SERECOR [Suspect]
     Dosage: UNKNOWN DOSE
     Route: 048
  6. PLAVIX [Suspect]
     Dosage: UNKNOWN DOSE
     Route: 048
  7. MOPRAL [Suspect]
     Dosage: UNKNOWN DOSE
     Route: 048
  8. GAVISCON [Suspect]
     Dosage: UNKNOWN DOSE
     Route: 048
  9. LISINOPRIL ANHYDROUS [Suspect]
     Dosage: UNKNOWN DOSE
     Route: 048
  10. GUTRON [Suspect]
     Dosage: UNKNOWN DOSE
  11. LEVOTHYROX [Suspect]
     Dosage: UNKNOWN DOSE
  12. MANTADIX [Suspect]
     Dosage: UNKNOWN DOSE
     Route: 048
     Dates: start: 201309, end: 20131023

REACTIONS (1)
  - Neutropenia [Unknown]
